FAERS Safety Report 9648685 (Version 1)
Quarter: 2013Q4

REPORT INFORMATION
  Report Type: Spontaneous
  Country: FR (occurrence: FR)
  Receive Date: 20131028
  Receipt Date: 20131028
  Transmission Date: 20140711
  Serious: Yes (Hospitalization)
  Sender: FDA-Public Use
  Company Number: FR-PFIZER INC-2013304046

PATIENT
  Age: 78 Year
  Sex: Female

DRUGS (2)
  1. TAZOCILLINE [Suspect]
     Indication: BACTERIAL INFECTION
     Dosage: UNK
     Dates: start: 20130527, end: 20130612
  2. CUBICIN [Suspect]
     Dosage: UNK
     Dates: start: 20130522, end: 20130612

REACTIONS (1)
  - Eosinophilic pneumonia [Recovering/Resolving]
